FAERS Safety Report 4641940-8 (Version None)
Quarter: 2005Q2

REPORT INFORMATION
  Report Type: 
  Country: None (occurrence: None)
  Receive Date: 20050420
  Receipt Date: 20050404
  Transmission Date: 20051028
  Serious: Yes (Hospitalization, Other)
  Sender: FDA-Public Use
  Company Number: USA040668897

PATIENT
  Age: 83 Year
  Sex: Female
  Weight: 88 kg

DRUGS (10)
  1. HUMULIN N [Suspect]
     Dosage: 43 U DAY
     Dates: start: 20000101
  2. BUMEX [Concomitant]
  3. LOPRESSOR [Concomitant]
  4. THEO-DUR [Concomitant]
  5. PLAVIX [Concomitant]
  6. SINGULAIR (MONTELUKAST) [Concomitant]
  7. LIPITOR [Concomitant]
  8. PREVACID [Concomitant]
  9. LEVOXYL [Concomitant]
  10. ASPIRIN [Concomitant]

REACTIONS (7)
  - BLOOD GLUCOSE INCREASED [None]
  - COLOSTOMY [None]
  - DEVICE MALFUNCTION [None]
  - INJECTION SITE PAIN [None]
  - INJECTION SITE SWELLING [None]
  - PAIN [None]
  - PERITONITIS [None]
